FAERS Safety Report 19806330 (Version 1)
Quarter: 2021Q3

REPORT INFORMATION
  Report Type: Spontaneous
  Country: US (occurrence: US)
  Receive Date: 20210908
  Receipt Date: 20210908
  Transmission Date: 20211014
  Serious: Yes (Hospitalization)
  Sender: FDA-Public Use
  Company Number: US-GLAXOSMITHKLINE-US2021187447

PATIENT
  Age: 75 Year
  Sex: Female
  Weight: 48.53 kg

DRUGS (1)
  1. TRELEGY ELLIPTA [Suspect]
     Active Substance: FLUTICASONE FUROATE\UMECLIDINIUM BROMIDE\VILANTEROL TRIFENATATE
     Indication: CHRONIC OBSTRUCTIVE PULMONARY DISEASE
     Dosage: UNK 100?62.5?25 MCG
     Dates: start: 202101

REACTIONS (3)
  - Heart valve replacement [Recovering/Resolving]
  - Arterial disorder [Recovering/Resolving]
  - Transcatheter aortic valve implantation [Recovering/Resolving]

NARRATIVE: CASE EVENT DATE: 20210628
